FAERS Safety Report 10735160 (Version 1)
Quarter: 2015Q1

REPORT INFORMATION
  Report Type: Spontaneous
  Country: US (occurrence: US)
  Receive Date: 20150125
  Receipt Date: 20150125
  Transmission Date: 20150721
  Serious: No
  Sender: FDA-Public Use
  Company Number: US-ASTRAZENECA-2012SE70918

PATIENT
  Age: 65 Year
  Sex: Male

DRUGS (23)
  1. SEROQUEL [Suspect]
     Active Substance: QUETIAPINE FUMARATE
     Indication: INSOMNIA
     Route: 048
  2. ECHINACIA [Concomitant]
  3. METAMUCIL [Concomitant]
     Active Substance: PLANTAGO SEED
  4. CELEBREX [Concomitant]
     Active Substance: CELECOXIB
  5. NASACORT AQ SPRAY [Concomitant]
  6. LEXAPRO [Concomitant]
     Active Substance: ESCITALOPRAM OXALATE
  7. CRESTOR [Suspect]
     Active Substance: ROSUVASTATIN CALCIUM
     Route: 048
  8. ZINC [Concomitant]
     Active Substance: ZINC\ZINC CHLORIDE
  9. MAGNESIUM [Concomitant]
     Active Substance: MAGNESIUM
  10. ARTIFICIAL TEARS [Concomitant]
     Active Substance: GLYCERIN\HYPROMELLOSES\POLYETHYLENE GLYCOL 400
  11. ACETAMINOPHEN. [Concomitant]
     Active Substance: ACETAMINOPHEN
  12. COUMADIN [Concomitant]
     Active Substance: WARFARIN SODIUM
  13. FUROSEMIDE. [Concomitant]
     Active Substance: FUROSEMIDE
  14. BENICAR [Concomitant]
     Active Substance: OLMESARTAN MEDOXOMIL
  15. DEXILANT [Concomitant]
     Active Substance: DEXLANSOPRAZOLE
  16. ALLEGRA [Concomitant]
     Active Substance: FEXOFENADINE HYDROCHLORIDE
  17. ARTHRITIS PAIN RELIEF GEL [Concomitant]
  18. DICYCLOMINE (BENTYL) [Concomitant]
  19. NITROQUICK [Concomitant]
     Active Substance: NITROGLYCERIN
  20. VITAMIN C [Concomitant]
     Active Substance: ASCORBIC ACID
  21. NASALCROM SPRAY [Concomitant]
  22. SAW PALMETTO [Concomitant]
     Active Substance: SAW PALMETTO
  23. FLECAINIDE [Concomitant]
     Active Substance: FLECAINIDE

REACTIONS (3)
  - Product use issue [Unknown]
  - Memory impairment [Unknown]
  - Drug hypersensitivity [Unknown]
